FAERS Safety Report 18320034 (Version 1)
Quarter: 2020Q3

REPORT INFORMATION
  Report Type: Spontaneous
  Country: US (occurrence: US)
  Receive Date: 20200928
  Receipt Date: 20200928
  Transmission Date: 20201103
  Serious: No
  Sender: FDA-Public Use
  Company Number: US-MYLANLABS-2020M1081805

PATIENT
  Age: 58 Year
  Sex: Female

DRUGS (2)
  1. EPINEPHRINE. [Suspect]
     Active Substance: EPINEPHRINE
     Indication: BRADYCARDIA
  2. EPINEPHRINE. [Suspect]
     Active Substance: EPINEPHRINE
     Indication: PULSE ABSENT
     Dosage: UNK
     Route: 065
     Dates: start: 20200830

REACTIONS (1)
  - Off label use [Unknown]

NARRATIVE: CASE EVENT DATE: 20200830
